FAERS Safety Report 9387165 (Version 1)
Quarter: 2013Q3

REPORT INFORMATION
  Report Type: Spontaneous
  Country: AU (occurrence: AU)
  Receive Date: 20130708
  Receipt Date: 20130708
  Transmission Date: 20140515
  Serious: Yes (Other)
  Sender: FDA-Public Use
  Company Number: PHHY2013AU071274

PATIENT
  Age: 28 Year
  Sex: Female

DRUGS (1)
  1. ZOLEDRONIC ACID [Suspect]
     Dosage: UNK

REACTIONS (5)
  - Bradycardia [Unknown]
  - Presyncope [Unknown]
  - Unresponsive to stimuli [Unknown]
  - Pallor [Unknown]
  - Hypotension [Unknown]
